FAERS Safety Report 9785046 (Version 2)
Quarter: 2014Q1

REPORT INFORMATION
  Report Type: Spontaneous
  Country: US (occurrence: US)
  Receive Date: 20131227
  Receipt Date: 20140126
  Transmission Date: 20141002
  Serious: Yes (Hospitalization, Other)
  Sender: FDA-Public Use
  Company Number: US-009507513-1312USA010898

PATIENT
  Age: 28 Year
  Sex: Male

DRUGS (4)
  1. DEXAMETHASONE [Suspect]
     Indication: NEUROCYSTICERCOSIS
     Dosage: 16 MG DAILY WITH A SHORT TAPER
     Route: 048
  2. DEXAMETHASONE [Suspect]
     Dosage: UNK
     Route: 048
  3. ALBENDAZOLE [Concomitant]
     Indication: NEUROCYSTICERCOSIS
     Dosage: 800 MG, Q12H
  4. LEVETIRACETAM [Concomitant]
     Indication: NEUROCYSTICERCOSIS
     Dosage: 500 MG, BID

REACTIONS (1)
  - Brain oedema [Recovered/Resolved]
